FAERS Safety Report 8376127-9 (Version None)
Quarter: 2012Q2

REPORT INFORMATION
  Report Type: 
  Country: None (occurrence: None)
  Receive Date: 20120522
  Receipt Date: 20120518
  Transmission Date: 20120825
  Serious: Yes (Death, Hospitalization, Other)
  Sender: FDA-Public Use
  Company Number: PHHY2012US042671

PATIENT
  Age: 11 Year
  Sex: Female

DRUGS (6)
  1. PLASMAPHERESIS BLOOD-PACK SYSTEM INFUSION [Concomitant]
     Dosage: UNK UKN, UNK
  2. METHYLPREDNISOLONE [Concomitant]
     Indication: IMMUNOSUPPRESSION
     Dosage: UNK UKN, UNK
  3. TACROLIMUS [Concomitant]
     Indication: IMMUNOSUPPRESSION
     Dosage: UNK UKN, UNK
  4. IMMUNOGLOBULINS [Concomitant]
     Dosage: UNK UKN, UNK
     Route: 042
  5. MYCOPHENOLIC ACID [Suspect]
     Indication: IMMUNOSUPPRESSION
     Dosage: UNK UKN, UNK
  6. GANCICLOVIR [Concomitant]
     Indication: IMMUNOSUPPRESSION
     Dosage: UNK UKN, UNK

REACTIONS (8)
  - BRAIN HERNIATION [None]
  - BRAIN STEM ISCHAEMIA [None]
  - VENTRICULAR DYSFUNCTION [None]
  - BRAIN DEATH [None]
  - HEMIPARESIS [None]
  - RENAL FAILURE [None]
  - GAMMA-GLUTAMYLTRANSFERASE INCREASED [None]
  - NEUROLOGICAL DECOMPENSATION [None]
